FAERS Safety Report 14947725 (Version 1)
Quarter: 2018Q2

REPORT INFORMATION
  Report Type: Spontaneous
  Country: FR (occurrence: FR)
  Receive Date: 20180529
  Receipt Date: 20180529
  Transmission Date: 20180711
  Serious: Yes (Hospitalization)
  Sender: FDA-Public Use
  Company Number: FR-MYLANLABS-2018M1033844

PATIENT
  Age: 61 Year
  Sex: Female
  Weight: 52 kg

DRUGS (2)
  1. MIDAZOLAM [Suspect]
     Active Substance: MIDAZOLAM HYDROCHLORIDE
     Indication: PAIN
     Dosage: 0.5 MG, UNK
     Route: 042
  2. FENTANYL MYLAN [Suspect]
     Active Substance: FENTANYL
     Indication: PAIN
     Dosage: 75 ?G, UNK
     Route: 042

REACTIONS (2)
  - Fall [Recovered/Resolved]
  - Subarachnoid haematoma [Recovered/Resolved]

NARRATIVE: CASE EVENT DATE: 20171221
